FAERS Safety Report 5950306-X (Version None)
Quarter: 2008Q4

REPORT INFORMATION
  Report Type: 
  Country: None (occurrence: None)
  Receive Date: 20081112
  Receipt Date: 20081105
  Transmission Date: 20090506
  Serious: Yes (Other)
  Sender: FDA-Public Use
  Company Number: US-BAYER-200836979NA

PATIENT
  Age: 93 Year
  Sex: Male
  Weight: 53 kg

DRUGS (5)
  1. NEXAVAR [Suspect]
     Indication: HEPATIC NEOPLASM MALIGNANT
     Route: 048
     Dates: start: 20080901, end: 20081001
  2. NEXAVAR [Suspect]
     Route: 048
     Dates: start: 20081023
  3. DIURETICS [Concomitant]
     Indication: ASCITES
  4. DIURETICS [Concomitant]
  5. DIURETICS [Concomitant]

REACTIONS (7)
  - AGEUSIA [None]
  - AGITATION [None]
  - ANOREXIA [None]
  - ASTHENIA [None]
  - DEPRESSED MOOD [None]
  - DRY THROAT [None]
  - WEIGHT DECREASED [None]
